FAERS Safety Report 4353677-3 (Version None)
Quarter: 2004Q2

REPORT INFORMATION
  Report Type: 
  Country: None (occurrence: None)
  Receive Date: 20040430
  Receipt Date: 20040421
  Transmission Date: 20050107
  Serious: No
  Sender: FDA-Public Use
  Company Number: 2004UW08065

PATIENT
  Age: 13 Year
  Sex: Male
  Weight: 48.5349 kg

DRUGS (4)
  1. SEROQUEL [Suspect]
     Indication: ASPERGER'S DISORDER
     Dosage: 25 MG T ID + 150-200 HS
     Dates: start: 20031001
  2. SEROQUEL [Suspect]
     Indication: BIPOLAR DISORDER
     Dosage: 25 MG T ID + 150-200 HS
     Dates: start: 20031001
  3. ADDERALL 10 [Concomitant]
  4. TRILEPTAL [Concomitant]

REACTIONS (7)
  - ANTINUCLEAR ANTIBODY POSITIVE [None]
  - ARTHRALGIA [None]
  - BLOOD CREATINE PHOSPHOKINASE INCREASED [None]
  - JOINT SWELLING [None]
  - MYALGIA [None]
  - PAIN [None]
  - PARVOVIRUS INFECTION [None]
